FAERS Safety Report 25225621 (Version 1)
Quarter: 2025Q2

REPORT INFORMATION
  Report Type: Spontaneous
  Country: CA (occurrence: CA)
  Receive Date: 20250422
  Receipt Date: 20250422
  Transmission Date: 20250717
  Serious: Yes (Hospitalization, Other)
  Sender: ASTELLAS
  Company Number: CA-ASTELLAS-2025-AER-021495

PATIENT
  Age: 16 Month
  Sex: Female

DRUGS (30)
  1. TACROLIMUS [Suspect]
     Active Substance: TACROLIMUS
     Indication: Multivisceral transplantation
     Route: 065
     Dates: start: 2021
  2. AMLODIPINE [Concomitant]
     Active Substance: AMLODIPINE BESYLATE
     Indication: Product used for unknown indication
     Route: 065
  3. MYCOPHENOLIC ACID [Concomitant]
     Active Substance: MYCOPHENOLIC ACID
     Indication: Multivisceral transplantation
     Route: 065
     Dates: start: 2021
  4. PREDNISONE [Concomitant]
     Active Substance: PREDNISONE
     Indication: Multivisceral transplantation
     Route: 065
  5. PREDNISONE [Concomitant]
     Active Substance: PREDNISONE
     Route: 065
     Dates: start: 2021
  6. PREDNISONE [Concomitant]
     Active Substance: PREDNISONE
     Route: 065
  7. SIROLIMUS [Concomitant]
     Active Substance: SIROLIMUS
     Indication: Multivisceral transplantation
     Route: 065
     Dates: start: 2021
  8. DAPSONE [Concomitant]
     Active Substance: DAPSONE
     Indication: Asplenia
     Route: 065
  9. DAPSONE [Concomitant]
     Active Substance: DAPSONE
     Route: 065
  10. DAPSONE [Concomitant]
     Active Substance: DAPSONE
     Route: 065
  11. DAPSONE [Concomitant]
     Active Substance: DAPSONE
     Route: 065
  12. DAPSONE [Concomitant]
     Active Substance: DAPSONE
     Route: 065
  13. AMOXICILLIN [Concomitant]
     Active Substance: AMOXICILLIN
     Indication: Asplenia
     Route: 065
  14. PIPERACILLIN AND TAZOBACTAM [Concomitant]
     Active Substance: PIPERACILLIN SODIUM\TAZOBACTAM SODIUM
     Indication: Evidence based treatment
     Route: 065
  15. VANCOMYCIN [Concomitant]
     Active Substance: VANCOMYCIN
     Indication: Evidence based treatment
     Route: 065
  16. CEFAZOLIN [Concomitant]
     Active Substance: CEFAZOLIN
     Indication: Linear IgA disease
     Route: 065
  17. ENALAPRIL [Concomitant]
     Active Substance: ENALAPRIL
     Indication: Product used for unknown indication
     Route: 065
  18. RUPATADINE [Concomitant]
     Active Substance: RUPATADINE
     Indication: Linear IgA disease
     Route: 048
  19. HYDROXYZINE [Concomitant]
     Active Substance: HYDROXYZINE HYDROCHLORIDE
     Indication: Linear IgA disease
     Route: 048
  20. DOXEPIN [Concomitant]
     Active Substance: DOXEPIN
     Indication: Linear IgA disease
     Route: 048
  21. PROTOPIC [Concomitant]
     Active Substance: TACROLIMUS
     Indication: Rash pruritic
     Route: 061
  22. BETADERM [Concomitant]
     Active Substance: BETAMETHASONE VALERATE
     Indication: Rash pruritic
     Route: 061
  23. CLOBETASOL [Concomitant]
     Active Substance: CLOBETASOL
     Indication: Blister
     Route: 061
  24. MUPIROCIN [Concomitant]
     Active Substance: MUPIROCIN
     Indication: Skin ulcer
     Route: 061
  25. FLOVENT [Concomitant]
     Active Substance: FLUTICASONE PROPIONATE
     Indication: Skin ulcer
     Route: 061
  26. METHYLENE BLUE [Concomitant]
     Active Substance: METHYLENE BLUE
     Indication: Methaemoglobinaemia
     Route: 048
  27. METHYLPREDNISOLONE [Concomitant]
     Active Substance: METHYLPREDNISOLONE
     Indication: Methaemoglobinaemia
     Route: 048
  28. immunoglobulins [Concomitant]
     Indication: Linear IgA disease
     Route: 042
  29. immunoglobulins [Concomitant]
     Route: 042
  30. immunoglobulins [Concomitant]
     Route: 042

REACTIONS (6)
  - Norovirus infection [Unknown]
  - Linear IgA disease [Recovering/Resolving]
  - Urinary tract infection [Unknown]
  - Condition aggravated [Recovering/Resolving]
  - Condition aggravated [Unknown]
  - Off label use [Unknown]

NARRATIVE: CASE EVENT DATE: 20210101
